FAERS Safety Report 20261655 (Version 3)
Quarter: 2022Q1

REPORT INFORMATION
  Report Type: Spontaneous
  Country: ES (occurrence: ES)
  Receive Date: 20211231
  Receipt Date: 20220315
  Transmission Date: 20220424
  Serious: Yes (Death, Hospitalization, Other)
  Sender: FDA-Public Use
  Company Number: ES-UCBSA-2021058019

PATIENT
  Age: 77 Year
  Sex: Male

DRUGS (14)
  1. VALPROIC ACID [Suspect]
     Active Substance: VALPROIC ACID
     Indication: Partial seizures
     Dosage: UNK
     Route: 065
  2. VALPROIC ACID [Suspect]
     Active Substance: VALPROIC ACID
     Indication: Epilepsy
  3. VALPROIC ACID [Suspect]
     Active Substance: VALPROIC ACID
     Indication: Seizure prophylaxis
  4. CARBIDOPA\LEVODOPA [Suspect]
     Active Substance: CARBIDOPA\LEVODOPA
     Indication: Parkinson^s disease
     Dosage: UNK (MORNING DOSE 5 ML, CONTINUOUS 4.2 ML/H, EXTRA 3 ML, DAILY DOSE/MORNING DOSE 5 -2)
     Route: 050
     Dates: start: 2019
  5. CARBIDOPA\LEVODOPA [Suspect]
     Active Substance: CARBIDOPA\LEVODOPA
     Dosage: UNK (MORNING DOSE 5 ML, CONTINUOUS 4.2 ML/H, EXTRA 3 ML, DAILY DOSE/MORNING DOSE 5 -2)
     Route: 062
  6. KEPPRA [Suspect]
     Active Substance: LEVETIRACETAM
     Indication: Partial seizures
     Dosage: UNK (DOSE INCREASED)
     Route: 065
  7. KEPPRA [Suspect]
     Active Substance: LEVETIRACETAM
     Indication: Epilepsy
     Dosage: 750 MILLIGRAM, ONCE A DAY (750 MG, QD (750 MG,1 IN 1 D)
     Route: 065
  8. KEPPRA [Suspect]
     Active Substance: LEVETIRACETAM
     Indication: Seizure prophylaxis
  9. PHENYTOIN [Suspect]
     Active Substance: PHENYTOIN
     Indication: Partial seizures
     Dosage: UNK
     Route: 065
  10. PHENYTOIN [Suspect]
     Active Substance: PHENYTOIN
     Indication: Epilepsy
  11. PHENYTOIN [Suspect]
     Active Substance: PHENYTOIN
     Indication: Seizure prophylaxis
  12. VIMPAT [Suspect]
     Active Substance: LACOSAMIDE
     Indication: Partial seizures
     Dosage: UNK
     Route: 065
  13. VIMPAT [Suspect]
     Active Substance: LACOSAMIDE
     Indication: Epilepsy
  14. VIMPAT [Suspect]
     Active Substance: LACOSAMIDE
     Indication: Seizure prophylaxis

REACTIONS (8)
  - Pneumonia [Fatal]
  - General physical health deterioration [Fatal]
  - Status epilepticus [Fatal]
  - Drug ineffective [Unknown]
  - Epilepsy [Not Recovered/Not Resolved]
  - Vitamin B6 deficiency [Not Recovered/Not Resolved]
  - Vitamin B6 decreased [Unknown]
  - Multiple-drug resistance [Unknown]
